FAERS Safety Report 12593134 (Version 1)
Quarter: 2016Q3

REPORT INFORMATION
  Report Type: Spontaneous
  Country: GB (occurrence: GB)
  Receive Date: 20160726
  Receipt Date: 20160726
  Transmission Date: 20161109
  Serious: Yes (Other)
  Sender: FDA-Public Use
  Company Number: GB-MYLANLABS-2016M1029674

PATIENT

DRUGS (10)
  1. LEVOTHYROXINE. [Concomitant]
     Active Substance: LEVOTHYROXINE
     Dosage: 1 DF, QD
     Route: 048
     Dates: start: 20150605
  2. MONTELUKAST [Suspect]
     Active Substance: MONTELUKAST SODIUM
     Dosage: UNK
     Dates: start: 20160608, end: 20160706
  3. NAPROXEN. [Concomitant]
     Active Substance: NAPROXEN
     Dosage: WITH FOOD.
     Route: 048
     Dates: start: 20150605
  4. SALBUTAMOL [Concomitant]
     Active Substance: ALBUTEROL
     Route: 055
     Dates: start: 20150605
  5. PREDNISOLONE. [Concomitant]
     Active Substance: PREDNISOLONE
     Dosage: 6 DF, QD
     Route: 048
     Dates: start: 20160608, end: 20160613
  6. FEXOFENADINE [Concomitant]
     Active Substance: FEXOFENADINE\FEXOFENADINE HYDROCHLORIDE
     Dosage: 1 DF, QD
     Route: 048
     Dates: start: 20160706
  7. MELOXICAM. [Concomitant]
     Active Substance: MELOXICAM
     Dosage: 1 DF, QD
     Route: 048
     Dates: start: 20160606, end: 20160623
  8. OMEPRAZOLE. [Concomitant]
     Active Substance: OMEPRAZOLE
     Route: 048
     Dates: start: 20150605
  9. SYMBICORT [Concomitant]
     Active Substance: BUDESONIDE\FORMOTEROL FUMARATE DIHYDRATE
     Dosage: MORNING AND EVENING. CAN USE TWICE ...
     Route: 055
     Dates: start: 20150605
  10. SERTRALINE [Concomitant]
     Active Substance: SERTRALINE HYDROCHLORIDE
     Dosage: 1 DF, QD
     Route: 048
     Dates: start: 20150605

REACTIONS (5)
  - Self-injurious ideation [Unknown]
  - Mood swings [Unknown]
  - Agitation [Unknown]
  - Depressed mood [Unknown]
  - Hallucination [Recovered/Resolved]

NARRATIVE: CASE EVENT DATE: 20160608
